FAERS Safety Report 5770540-1 (Version None)
Quarter: 2008Q2

REPORT INFORMATION
  Report Type: 
  Country: None (occurrence: None)
  Receive Date: 20080613
  Receipt Date: 20080506
  Transmission Date: 20081010
  Serious: No
  Sender: FDA-Public Use
  Company Number: US-ABBOTT-08P-163-0450684-00

PATIENT
  Sex: Female
  Weight: 49.032 kg

DRUGS (10)
  1. HUMIRA [Suspect]
     Indication: CROHN'S DISEASE
     Route: 058
     Dates: start: 20080505, end: 20080505
  2. HUMIRA [Suspect]
     Route: 058
     Dates: start: 20080519, end: 20080519
  3. HUMIRA [Suspect]
     Route: 058
  4. LANSOPRAZOLE [Concomitant]
     Indication: GASTROOESOPHAGEAL REFLUX DISEASE
     Route: 048
     Dates: start: 20051201
  5. ONDANSETRON [Concomitant]
     Indication: CROHN'S DISEASE
     Route: 048
     Dates: start: 20051201
  6. ONDANSETRON [Concomitant]
     Indication: DIARRHOEA
  7. PREDNISONE TAB [Concomitant]
     Indication: CROHN'S DISEASE
     Route: 048
     Dates: start: 20051201
  8. VITAMINS [Concomitant]
     Indication: VITAMIN SUPPLEMENTATION
     Route: 048
     Dates: start: 20051201
  9. CALCIUM [Concomitant]
     Indication: MINERAL SUPPLEMENTATION
     Route: 048
     Dates: start: 20051201
  10. IRON [Concomitant]
     Indication: ANAEMIA
     Route: 048
     Dates: start: 20051201

REACTIONS (1)
  - ACCIDENTAL EXPOSURE [None]
